FAERS Safety Report 12506051 (Version 4)
Quarter: 2016Q3

REPORT INFORMATION
  Report Type: Report from Study
  Country: CO (occurrence: CO)
  Receive Date: 20160628
  Receipt Date: 20160824
  Transmission Date: 20161109
  Serious: Yes (Hospitalization)
  Sender: FDA-Public Use
  Company Number: PHHY2016CO088108

PATIENT
  Sex: Female
  Weight: 55 kg

DRUGS (2)
  1. EXJADE [Suspect]
     Active Substance: DEFERASIROX
     Indication: IRON OVERLOAD
     Dosage: 10 MG/KG (500 MG), QD
     Route: 048
  2. ERYTHROPOIETIN [Concomitant]
     Active Substance: ERYTHROPOIETIN
     Indication: PRODUCT USED FOR UNKNOWN INDICATION
     Dosage: UNK UKN, UNK
     Route: 065

REACTIONS (9)
  - Malaise [Unknown]
  - Renal disorder [Unknown]
  - Haemolysis [Unknown]
  - Yellow skin [Unknown]
  - Blood iron increased [Unknown]
  - Haemolytic anaemia [Unknown]
  - Hepatic neoplasm [Unknown]
  - Blood bilirubin increased [Unknown]
  - Lung infection [Unknown]
